FAERS Safety Report 4678718-5 (Version None)
Quarter: 2005Q2

REPORT INFORMATION
  Report Type: 
  Country: None (occurrence: None)
  Receive Date: 20050531
  Receipt Date: 20050519
  Transmission Date: 20051028
  Serious: Yes (Other)
  Sender: FDA-Public Use
  Company Number: 2005077554

PATIENT
  Age: 17 Month
  Sex: Female
  Weight: 10.8863 kg

DRUGS (3)
  1. CHILDREN'S PEDIACARE NIGHTREST COUGH AND COLD (PSEUDOEPHEDRINE, DEXTRO [Suspect]
     Indication: ACCIDENTAL EXPOSURE
     Dosage: HALF A BOTTLE, ONCE, ORAL
     Route: 048
     Dates: start: 20050519, end: 20050519
  2. BENZOCIANE (BENZOCAINE) [Concomitant]
  3. COUGH AND COLD PREPARATIONS (COUGH AND COLD PREPARATIONS) [Concomitant]

REACTIONS (2)
  - ACCIDENTAL EXPOSURE [None]
  - EXERCISE ELECTROCARDIOGRAM ABNORMAL [None]
